FAERS Safety Report 8018126-2 (Version None)
Quarter: 2012Q1

REPORT INFORMATION
  Report Type: 
  Country: None (occurrence: None)
  Receive Date: 20120103
  Receipt Date: 20111229
  Transmission Date: 20120608
  Serious: Yes (Hospitalization, Other)
  Sender: FDA-Public Use
  Company Number: US-JNJFOC-20120100034

PATIENT
  Sex: Female
  Weight: 139.71 kg

DRUGS (7)
  1. DURAGESIC-100 [Suspect]
     Indication: PAIN
     Route: 062
     Dates: start: 20111101, end: 20111101
  2. VASOTEC [Concomitant]
     Indication: HYPERTENSION
     Route: 065
  3. ADVAIR DISKUS 100/50 [Concomitant]
     Indication: ASTHMA
     Route: 065
  4. HUMALOG [Concomitant]
     Indication: DIABETES MELLITUS
     Route: 065
     Dates: start: 20090101
  5. INSULIN GLARGINE [Concomitant]
     Indication: DIABETES MELLITUS
     Route: 065
  6. NEXIUM [Concomitant]
     Indication: OESOPHAGEAL DISORDER
     Route: 065
  7. VASERETIC [Concomitant]
     Indication: HYPERTENSION
     Route: 065

REACTIONS (3)
  - MALAISE [None]
  - PNEUMONIA [None]
  - EATING DISORDER [None]
